FAERS Safety Report 12214446 (Version 4)
Quarter: 2017Q2

REPORT INFORMATION
  Report Type: Report from Study
  Country: IN (occurrence: IN)
  Receive Date: 20160328
  Receipt Date: 20170508
  Transmission Date: 20170830
  Serious: Yes (Other)
  Sender: FDA-Public Use
  Company Number: PHHY2016IN039990

PATIENT
  Sex: Female
  Weight: 66 kg

DRUGS (2)
  1. TASIGNA [Suspect]
     Active Substance: NILOTINIB
     Indication: CHRONIC MYELOID LEUKAEMIA
     Dosage: 300 MG, BID
     Route: 048
     Dates: start: 201501, end: 20160715
  2. TASIGNA [Suspect]
     Active Substance: NILOTINIB
     Dosage: 300 MG, BID
     Route: 048
     Dates: start: 20160803

REACTIONS (4)
  - Ascites [Unknown]
  - Restrictive cardiomyopathy [Unknown]
  - Cardiomyopathy [Unknown]
  - Angiopathy [Not Recovered/Not Resolved]
